FAERS Safety Report 7777496-0 (Version None)
Quarter: 2011Q3

REPORT INFORMATION
  Report Type: 
  Country: None (occurrence: None)
  Receive Date: 20110926
  Receipt Date: 20110914
  Transmission Date: 20111222
  Serious: Yes (Hospitalization)
  Sender: FDA-Public Use
  Company Number: US-SANOFI-AVENTIS-2011SA044458

PATIENT
  Age: 71 Year
  Sex: Female
  Weight: 77 kg

DRUGS (11)
  1. DRONEDARONE HCL [Suspect]
     Indication: ATRIAL FIBRILLATION
     Route: 048
     Dates: start: 20110414, end: 20110707
  2. METOPROLOL TARTRATE [Concomitant]
     Route: 065
  3. DILTIAZEM [Concomitant]
     Route: 065
  4. THIAZIDES [Concomitant]
     Route: 065
     Dates: end: 20110511
  5. ASPIRIN [Concomitant]
     Route: 065
  6. ADVAIR DISKUS 100/50 [Concomitant]
     Route: 065
     Dates: end: 20110511
  7. ZETIA [Concomitant]
  8. WARFARIN SODIUM [Concomitant]
     Route: 065
  9. VALSARTAN [Concomitant]
     Route: 065
     Dates: end: 20110511
  10. ATORVASTATIN [Concomitant]
     Route: 065
  11. METFORMIN HCL [Concomitant]
     Route: 065

REACTIONS (2)
  - CHEST PAIN [None]
  - CARDIAC FAILURE [None]
